FAERS Safety Report 4562720-8 (Version None)
Quarter: 2005Q1

REPORT INFORMATION
  Report Type: 
  Country: None (occurrence: None)
  Receive Date: 20050124
  Receipt Date: 20050112
  Transmission Date: 20050727
  Serious: Yes (Death, Disabling)
  Sender: FDA-Public Use
  Company Number: 163-20785-04110527

PATIENT
  Age: 22 Year
  Sex: Male

DRUGS (1)
  1. THALOMID [Suspect]
     Indication: BRAIN NEOPLASM MALIGNANT
     Dosage: 50 MG, QD, ORAL
     Route: 048
     Dates: start: 20040819

REACTIONS (2)
  - ASTHENIA [None]
  - PARESIS [None]
